FAERS Safety Report 7290917-5 (Version None)
Quarter: 2011Q1

REPORT INFORMATION
  Report Type: 
  Country: None (occurrence: None)
  Receive Date: 20110214
  Receipt Date: 20110210
  Transmission Date: 20110831
  Serious: Yes (Life-Threatening, Hospitalization)
  Sender: FDA-Public Use
  Company Number: US-GENZYME-CAMP-1001407

PATIENT
  Sex: Female

DRUGS (13)
  1. ALBUTEROL [Concomitant]
     Indication: ASTHMA
     Dosage: UNK
  2. ABILIFY [Concomitant]
     Indication: DEPRESSION
     Dosage: UNK MG, UNK
     Route: 048
     Dates: start: 20080701
  3. KLONOPIN [Concomitant]
     Indication: TREMOR
     Dosage: 0.5 MG, BID
     Route: 048
     Dates: start: 20060101
  4. AMBIEN [Concomitant]
     Indication: INSOMNIA
     Dosage: 10 MG, UNK
     Route: 048
     Dates: start: 20060101
  5. ACETAZOLAMIDE [Concomitant]
     Indication: MASS
     Dosage: 250 MG, TID
     Route: 048
     Dates: start: 20070101
  6. VITAMIN D [Concomitant]
     Indication: VITAMIN D DEFICIENCY
     Dosage: 15000 IU, QW
     Route: 048
     Dates: start: 20100628
  7. CAMPATH [Suspect]
     Indication: MULTIPLE SCLEROSIS
     Dosage: 24 MG, QD
     Route: 042
     Dates: start: 20090112, end: 20090128
  8. SYNTHROID [Concomitant]
     Indication: HYPOTHYROIDISM
     Dosage: .05 MG, QD
     Route: 048
     Dates: start: 19940101
  9. ADVAIR DISKUS 100/50 [Concomitant]
     Indication: ASTHMA
     Dosage: 250 MG, BID
     Route: 048
     Dates: start: 20090628
  10. CAMPATH [Suspect]
     Dosage: UNK
     Dates: start: 20100111, end: 20100113
  11. BACLOFEN [Concomitant]
     Indication: MUSCLE SPASMS
     Dosage: 20 MG, BID
     Route: 048
     Dates: start: 20060101
  12. HYDROCHLOROTHIAZIDE [Concomitant]
     Indication: HYPERTENSION
     Dosage: 12.5 MG, UNK
     Route: 048
     Dates: start: 20060101
  13. VICODIN [Concomitant]
     Indication: HEADACHE
     Dosage: 7.5/750 MG, PRN
     Route: 048
     Dates: start: 20020101

REACTIONS (1)
  - SUICIDAL IDEATION [None]
